FAERS Safety Report 15251969 (Version 3)
Quarter: 2019Q3

REPORT INFORMATION
  Report Type: Report from Study
  Country: US (occurrence: US)
  Receive Date: 20180807
  Receipt Date: 20190828
  Transmission Date: 20191004
  Serious: Yes (Other)
  Sender: FDA-Public Use
  Company Number: PHEH2018US032318

PATIENT
  Sex: Male

DRUGS (2)
  1. ENTRESTO [Suspect]
     Active Substance: SACUBITRIL\VALSARTAN
     Indication: CARDIAC FAILURE
     Dosage: UNK
     Route: 048
  2. ENTRESTO [Suspect]
     Active Substance: SACUBITRIL\VALSARTAN
     Dosage: 1 DF (49 MG SACUBITRIL/ 51 MG VALSARTAN), UNK
     Route: 048

REACTIONS (6)
  - Restless legs syndrome [Unknown]
  - Malaise [Unknown]
  - Wrong technique in product usage process [Unknown]
  - Sleep apnoea syndrome [Unknown]
  - Myocardial infarction [Unknown]
  - Cerebrovascular accident [Unknown]
